FAERS Safety Report 7471717-X (Version None)
Quarter: 2011Q2

REPORT INFORMATION
  Report Type: 
  Country: None (occurrence: None)
  Receive Date: 20110511
  Receipt Date: 20110429
  Transmission Date: 20111010
  Serious: Yes (Death, Other)
  Sender: FDA-Public Use
  Company Number: IT-CELGENEUS-083-21880-10122365

PATIENT

DRUGS (9)
  1. CYCLOPHOSPHAMIDE [Suspect]
     Dosage: 250 MILLIGRAM/SQ. METER
     Route: 065
  2. REVLIMID [Suspect]
     Dosage: 5 MILLIGRAM
     Route: 048
  3. NEUPOGEN [Concomitant]
     Indication: PROPHYLAXIS
     Route: 065
  4. ENOXAPARIN [Concomitant]
     Indication: THROMBOSIS PROPHYLAXIS
     Dosage: 4000 UNITS
     Route: 058
  5. FLUDARABINE PHOSPHATE [Suspect]
     Dosage: 30 MILLIGRAM/SQ. METER
     Route: 051
  6. REVLIMID [Suspect]
     Dosage: 10 MILLIGRAM
     Route: 048
  7. REVLIMID [Suspect]
     Dosage: 2.5 MILLIGRAM
     Route: 048
  8. REVLIMID [Suspect]
     Dosage: 15 MILLIGRAM
     Route: 048
  9. ALLOPURINOL [Concomitant]
     Indication: PROPHYLAXIS
     Dosage: 300 MILLIGRAM
     Route: 065

REACTIONS (10)
  - TUMOUR FLARE [None]
  - NEUTROPENIA [None]
  - RICHTER'S SYNDROME [None]
  - FATIGUE [None]
  - LIVER DISORDER [None]
  - PNEUMONIA [None]
  - CONSTIPATION [None]
  - CHRONIC LYMPHOCYTIC LEUKAEMIA [None]
  - RASH [None]
  - TREATMENT FAILURE [None]
